FAERS Safety Report 4704129-X (Version None)
Quarter: 2005Q2

REPORT INFORMATION
  Report Type: 
  Country: None (occurrence: None)
  Receive Date: 20050629
  Receipt Date: 20030331
  Transmission Date: 20051028
  Serious: Yes (Disabling)
  Sender: FDA-Public Use
  Company Number: 5188

PATIENT
  Age: 75 Year
  Sex: Male

DRUGS (7)
  1. AMIODARONE [Suspect]
     Indication: ATRIAL FIBRILLATION
     Dosage: 200 MG PO
     Route: 048
     Dates: end: 20010501
  2. AMIODARONE [Suspect]
     Indication: ATRIAL FIBRILLATION
     Dosage: 4800 MG TOTAL IV
     Route: 042
     Dates: end: 20030122
  3. AMIODARONE [Suspect]
     Indication: ATRIAL FIBRILLATION
     Dosage: 200 MG OTH PO
     Route: 048
     Dates: end: 20030207
  4. ENALAPRIL MALEATE [Concomitant]
  5. FRUSEMIDE [Concomitant]
  6. ENOXAPARIN SODIUM [Concomitant]
  7. WARFARIN [Concomitant]

REACTIONS (1)
  - ESSENTIAL TREMOR [None]
